FAERS Safety Report 13935809 (Version 1)
Quarter: 2017Q3

REPORT INFORMATION
  Report Type: Spontaneous
  Country: US (occurrence: None)
  Receive Date: 20170904
  Receipt Date: 20170904
  Transmission Date: 20171127
  Serious: No
  Sender: FDA-Public Use
  Company Number: None

PATIENT
  Age: 66 Year
  Sex: Female

DRUGS (1)
  1. CAPECITABINE TAB 150 MG [Suspect]
     Active Substance: CAPECITABINE
     Dosage: 1300MG/ 1450MG QAM/QPM ORAL
     Route: 048

REACTIONS (4)
  - Diarrhoea [None]
  - Oral mucosal blistering [None]
  - Fatigue [None]
  - Abdominal discomfort [None]

NARRATIVE: CASE EVENT DATE: 20170820
